FAERS Safety Report 21551072 (Version 1)
Quarter: 2022Q4

REPORT INFORMATION
  Report Type: Spontaneous
  Country: GB (occurrence: GB)
  Receive Date: 20221103
  Receipt Date: 20221103
  Transmission Date: 20230113
  Serious: Yes (Other)
  Sender: FDA-Public Use
  Company Number: None

PATIENT
  Age: 84 Year
  Sex: Female
  Weight: 76 kg

DRUGS (11)
  1. DONEPEZIL [Suspect]
     Active Substance: DONEPEZIL
     Indication: Product used for unknown indication
     Dosage: FREQUENCY UNKNOWN
     Route: 048
     Dates: start: 20221014
  2. AMITRIPTYLINE HYDROCHLORIDE [Concomitant]
     Active Substance: AMITRIPTYLINE HYDROCHLORIDE
     Indication: Product used for unknown indication
     Dosage: EACH NIGHT
     Route: 065
     Dates: start: 20220509
  3. BETAHISTINE [Concomitant]
     Active Substance: BETAHISTINE
     Indication: Product used for unknown indication
     Dosage: UP TO THREE TIMES DAILY, BUT OMIT WHENEVE...
     Route: 065
     Dates: start: 20220509
  4. METHYLPREDNISOLONE [Concomitant]
     Active Substance: METHYLPREDNISOLONE
     Indication: Product used for unknown indication
     Dosage: PA (TO THE AFFECTED PART)
     Route: 065
     Dates: start: 20221006, end: 20221007
  5. DOCUSATE SODIUM [Concomitant]
     Active Substance: DOCUSATE SODIUM
     Indication: Product used for unknown indication
     Dosage: TAKE ONE OR TWO CAPSULES, ONCE OR TWICE DAILY, ...
     Route: 065
     Dates: start: 20220830
  6. IBUPROFEN [Concomitant]
     Active Substance: IBUPROFEN
     Indication: Product used for unknown indication
     Dosage: APPLY 3-4 TIMES/DAY
     Route: 065
     Dates: start: 20220509
  7. POLYETHYLENE GLYCOL 3350\POTASSIUM CHLORIDE\SODIUM BICARBONATE\SODIUM [Concomitant]
     Active Substance: POLYETHYLENE GLYCOL 3350\POTASSIUM CHLORIDE\SODIUM BICARBONATE\SODIUM CHLORIDE
     Indication: Product used for unknown indication
     Dosage: TAKE 1-3 SACHETS DISSOLVED IN WATER DAILY
     Route: 065
     Dates: start: 20220928
  8. LIDOCAINE [Concomitant]
     Active Substance: LIDOCAINE
     Indication: Product used for unknown indication
     Dosage: PA (TO THE AFFECTED PART)
     Route: 065
     Dates: start: 20221006, end: 20221007
  9. POLYETHYLENE GLYCOLS [Concomitant]
     Active Substance: POLYETHYLENE GLYCOLS
     Indication: Product used for unknown indication
     Dosage: TAKE ONE OR TWO DAILY, DOSE UNKNOWN
     Route: 065
     Dates: start: 20220525, end: 20220928
  10. ACETAMINOPHEN [Concomitant]
     Active Substance: ACETAMINOPHEN
     Indication: Product used for unknown indication
     Dosage: TAKE 1 OR 2, DOSE UNKNOWN
     Route: 065
     Dates: start: 20220509
  11. CARBOMER [Concomitant]
     Active Substance: CARBOMER
     Indication: Eye lubrication therapy
     Dosage: ONE TO TWO DROPS, DOSE UNKNOWN
     Route: 065
     Dates: start: 20220509

REACTIONS (3)
  - Gait disturbance [Unknown]
  - Confusional state [Unknown]
  - Dizziness [Unknown]

NARRATIVE: CASE EVENT DATE: 20221001
